FAERS Safety Report 5230085-4 (Version None)
Quarter: 2007Q1

REPORT INFORMATION
  Report Type: 
  Country: None (occurrence: None)
  Receive Date: 20070206
  Receipt Date: 20060707
  Transmission Date: 20070707
  Serious: No
  Sender: FDA-Public Use
  Company Number: US-GLAXOSMITHKLINE-A0608642A

PATIENT
  Age: 43 Year
  Sex: Female

DRUGS (2)
  1. PAXIL CR [Suspect]
     Dosage: 25MG PER DAY
     Route: 048
     Dates: start: 20060515, end: 20060525
  2. XANAX [Concomitant]

REACTIONS (7)
  - BEDRIDDEN [None]
  - BURNING SENSATION [None]
  - DIZZINESS [None]
  - FEELING ABNORMAL [None]
  - FEELING HOT AND COLD [None]
  - INSOMNIA [None]
  - VISION BLURRED [None]
